FAERS Safety Report 8464331-0 (Version None)
Quarter: 2012Q2

REPORT INFORMATION
  Report Type: 
  Country: None (occurrence: None)
  Receive Date: 20120625
  Receipt Date: 20120612
  Transmission Date: 20120825
  Serious: Yes (Other)
  Sender: FDA-Public Use
  Company Number: US-BAYER-2012-061437

PATIENT
  Age: 65 Year
  Sex: Female
  Weight: 49.44 kg

DRUGS (9)
  1. BUMETANIDE [Concomitant]
     Indication: CARDIAC DISORDER
     Route: 048
  2. CARVEDILOL [Concomitant]
     Indication: CARDIAC DISORDER
     Dosage: 6.25/ 1/2 MORNING
     Route: 048
  3. AMIODARONE HYDROCHLORIDE [Concomitant]
     Indication: CARDIAC DISORDER
     Dosage: 100 MG, QD
     Route: 048
  4. XARELTO [Interacting]
     Indication: CARDIAC FLUTTER
     Dosage: 15 MG, QD
     Route: 048
     Dates: start: 20120529
  5. DIGOXIN [Concomitant]
     Indication: CARDIAC DISORDER
     Dosage: .125 MG, UNK
     Route: 048
  6. SPIRONOLACTONE [Concomitant]
     Indication: CARDIAC DISORDER
     Dosage: 25 MG, BID
     Route: 048
  7. LOSARTAN POTASSIUM [Concomitant]
     Indication: CARDIAC DISORDER
     Route: 048
  8. XARELTO [Interacting]
     Indication: CEREBROVASCULAR ACCIDENT PROPHYLAXIS
     Dosage: 15 MG, QD
     Route: 048
     Dates: start: 20120529
  9. ASPIRIN [Suspect]
     Indication: CARDIAC DISORDER
     Dosage: 81 MG, QD
     Route: 048

REACTIONS (5)
  - EPISTAXIS [None]
  - BLOOD URINE PRESENT [None]
  - INAPPROPRIATE SCHEDULE OF DRUG ADMINISTRATION [None]
  - COAGULATION TIME PROLONGED [None]
  - DIZZINESS [None]
